FAERS Safety Report 7117859-X (Version None)
Quarter: 2010Q4

REPORT INFORMATION
  Report Type: 
  Country: None (occurrence: None)
  Receive Date: 20101118
  Receipt Date: 20101118
  Transmission Date: 20110411
  Serious: Yes (Other)
  Sender: FDA-Public Use
  Company Number: None

PATIENT
  Age: 51 Year
  Sex: Female
  Weight: 63.6 kg

DRUGS (1)
  1. LEVAQUIN [Suspect]
     Indication: SINUSITIS
     Dosage: 1X DAILY ORAL
     Route: 048

REACTIONS (6)
  - MUSCLE SPASMS [None]
  - PAIN IN EXTREMITY [None]
  - SINUSITIS [None]
  - SLEEP DISORDER [None]
  - TENDERNESS [None]
  - TENDON PAIN [None]
